FAERS Safety Report 6829696-1 (Version None)
Quarter: 2010Q3

REPORT INFORMATION
  Report Type: 
  Country: None (occurrence: None)
  Receive Date: 20100709
  Receipt Date: 20070805
  Transmission Date: 20110219
  Serious: No
  Sender: FDA-Public Use
  Company Number: US-PFIZER INC-2007007347

PATIENT
  Age: 63 Year
  Sex: Female
  Weight: 56.7 kg

DRUGS (3)
  1. CHANTIX [Suspect]
     Indication: SMOKING CESSATION THERAPY
     Dates: start: 20070109
  2. ACCOLATE [Concomitant]
  3. THEOPHYLLINE [Concomitant]
     Indication: ASTHMA
     Dates: end: 20070119

REACTIONS (8)
  - ABDOMINAL DISCOMFORT [None]
  - CHILLS [None]
  - CONSTIPATION [None]
  - FEELING ABNORMAL [None]
  - HEADACHE [None]
  - MALAISE [None]
  - NAUSEA [None]
  - SEDATION [None]
